FAERS Safety Report 4507894-X (Version None)
Quarter: 2004Q4

REPORT INFORMATION
  Report Type: 
  Country: None (occurrence: None)
  Receive Date: 20041123
  Receipt Date: 20040609
  Transmission Date: 20050328
  Serious: Yes (Death, Hospitalization)
  Sender: FDA-Public Use
  Company Number: SE-ROCHE-370491

PATIENT
  Age: 48 Year
  Sex: Female

DRUGS (7)
  1. CELLCEPT [Suspect]
     Indication: DEMYELINATING POLYNEUROPATHY
     Route: 048
     Dates: start: 20031215, end: 20040515
  2. CELLCEPT [Suspect]
     Dosage: REPORTED AS 1000 + 750 MG/DAY
     Route: 048
     Dates: start: 20040515, end: 20040601
  3. CELLCEPT [Suspect]
     Dosage: REPORTED AS 500 + 500 MG/DAY.
     Route: 048
     Dates: start: 20040602
  4. PREDNISOLONE [Concomitant]
     Indication: CHRONIC INFLAMMATORY DEMYELINATING POLYRADICULONEUROPATHY
     Dates: start: 20030615
  5. DIAMOX [Concomitant]
  6. INSULIN [Concomitant]
  7. DIURETICS NOS [Concomitant]

REACTIONS (10)
  - ASCITES [None]
  - BLOOD ELECTROLYTES ABNORMAL [None]
  - GENERALISED OEDEMA [None]
  - HEPATOSPLENOMEGALY [None]
  - HYPOALBUMINAEMIA [None]
  - LYMPHADENOPATHY [None]
  - PULMONARY EMBOLISM [None]
  - RESPIRATORY FAILURE [None]
  - SHOCK [None]
  - X-RAY ABNORMAL [None]
